FAERS Safety Report 5140926-7 (Version None)
Quarter: 2006Q4

REPORT INFORMATION
  Report Type: 
  Country: None (occurrence: None)
  Receive Date: 20061026
  Receipt Date: 20061026
  Transmission Date: 20070319
  Serious: Yes (Hospitalization)
  Sender: FDA-Public Use
  Company Number: None

PATIENT
  Sex: Male
  Weight: 71 kg

DRUGS (2)
  1. IBUPROFEN [Suspect]
     Indication: ARTHRALGIA
     Dosage: 800 MG TID PRN PO
     Route: 048
     Dates: start: 20060301, end: 20060801
  2. PREDNISONE [Suspect]
     Indication: SARCOIDOSIS
     Dosage: TAPER FROM 25 MG TO 0 DAILY PO
     Route: 048
     Dates: start: 20060801, end: 20060801

REACTIONS (4)
  - FAECES DISCOLOURED [None]
  - GASTROINTESTINAL ULCER [None]
  - HAEMATEMESIS [None]
  - OCCULT BLOOD POSITIVE [None]
